FAERS Safety Report 4348983-2 (Version None)
Quarter: 2004Q2

REPORT INFORMATION
  Report Type: 
  Country: None (occurrence: None)
  Receive Date: 20040428
  Receipt Date: 20040416
  Transmission Date: 20050107
  Serious: Yes (Hospitalization)
  Sender: FDA-Public Use
  Company Number: CH-BRISTOL-MYERS SQUIBB COMPANY-12561643

PATIENT
  Age: 42 Year
  Sex: Female

DRUGS (4)
  1. ATAZANAVIR [Suspect]
     Indication: HIV INFECTION
     Dates: start: 20040309
  2. STAVUDINE [Concomitant]
     Indication: HIV INFECTION
     Dates: start: 20040309
  3. TENOFOVIR [Concomitant]
     Indication: HIV INFECTION
     Dates: start: 20040309
  4. RITONAVIR [Concomitant]
     Indication: HIV INFECTION
     Dates: start: 20040309

REACTIONS (1)
  - HYDROCHOLECYSTIS [None]
